FAERS Safety Report 8933084 (Version 1)
Quarter: 2012Q4

REPORT INFORMATION
  Report Type: 
  Country: US (occurrence: US)
  Receive Date: 20121129
  Receipt Date: 20121129
  Transmission Date: 20130627
  Serious: Yes (Hospitalization, Other)
  Sender: FDA-Public Use
  Company Number: US-BIOGENIDEC-2012BI054852

PATIENT
  Age: 52 Year
  Sex: Male

DRUGS (1)
  1. TYSABRI [Suspect]
     Indication: MULTIPLE SCLEROSIS
     Route: 042

REACTIONS (6)
  - Tinea cruris [Recovered/Resolved]
  - Cystitis escherichia [Recovered/Resolved]
  - Sepsis [Recovered/Resolved]
  - Fungal infection [Recovered/Resolved]
  - Patient-device incompatibility [Recovered/Resolved]
  - Quadriplegia [Unknown]
